FAERS Safety Report 24796004 (Version 1)
Quarter: 2025Q1

REPORT INFORMATION
  Report Type: Spontaneous
  Country: US (occurrence: US)
  Receive Date: 20250101
  Receipt Date: 20250101
  Transmission Date: 20250408
  Serious: Yes (Other)
  Sender: SANOFI AVENTIS
  Company Number: US-DialogSolutions-SAAVPROD-PI724693-C1

PATIENT
  Age: 49 Year
  Sex: Female

DRUGS (5)
  1. TERIFLUNOMIDE [Suspect]
     Active Substance: TERIFLUNOMIDE
     Indication: Multiple sclerosis
     Dates: start: 202402
  2. LEVETIRACETAM [Concomitant]
     Active Substance: LEVETIRACETAM
     Dates: start: 202402
  3. BACLOFEN [Concomitant]
     Active Substance: BACLOFEN
     Dates: start: 202402
  4. AMLODIPINE [Concomitant]
     Active Substance: AMLODIPINE BESYLATE
     Dates: start: 202402
  5. LISINOPRIL [Concomitant]
     Active Substance: LISINOPRIL
     Dates: start: 202402

REACTIONS (12)
  - Clostridium difficile infection [Recovering/Resolving]
  - Proteus infection [Recovering/Resolving]
  - Inflammatory bowel disease [Recovering/Resolving]
  - Colitis [Recovering/Resolving]
  - Large intestinal ulcer [Recovering/Resolving]
  - Rectal ulcer [Recovering/Resolving]
  - Gastrointestinal sounds abnormal [Recovering/Resolving]
  - Oedema [Recovering/Resolving]
  - Oedema peripheral [Recovering/Resolving]
  - Abdominal pain [Recovering/Resolving]
  - Diarrhoea [Recovering/Resolving]
  - Dysbiosis [Recovering/Resolving]

NARRATIVE: CASE EVENT DATE: 20240101
